FAERS Safety Report 14355932 (Version 1)
Quarter: 2018Q1

REPORT INFORMATION
  Report Type: Spontaneous
  Country: US (occurrence: US)
  Receive Date: 20180105
  Receipt Date: 20180105
  Transmission Date: 20180509
  Serious: No
  Sender: FDA-Public Use
  Company Number: US-ASTRAZENECA-2018SE01368

PATIENT
  Sex: Male

DRUGS (1)
  1. SYNAGIS [Suspect]
     Active Substance: PALIVIZUMAB
     Dosage: UNKNOWN DOSE AND FREQUENCY
     Route: 030

REACTIONS (3)
  - Respiratory syncytial virus test positive [Unknown]
  - Drug dose omission [Unknown]
  - Bronchiolitis [Unknown]
